FAERS Safety Report 12893600 (Version 3)
Quarter: 2018Q3

REPORT INFORMATION
  Report Type: Spontaneous
  Country: JP (occurrence: JP)
  Receive Date: 20161028
  Receipt Date: 20180913
  Transmission Date: 20181010
  Serious: Yes (Other)
  Sender: FDA-Public Use
  Company Number: JP-SHIRE-JP201615610

PATIENT

DRUGS (1)
  1. 405 (LANTHANUM CARBONATE) [Suspect]
     Active Substance: LANTHANUM CARBONATE
     Indication: DIABETIC NEPHROPATHY
     Dosage: UNK
     Route: 048
     Dates: start: 201107

REACTIONS (5)
  - Chronic gastritis [Unknown]
  - Gastric ulcer [Unknown]
  - Medication residue present [Unknown]
  - Malaise [Unknown]
  - Gastritis erosive [Recovered/Resolved]
